FAERS Safety Report 24782264 (Version 2)
Quarter: 2025Q1

REPORT INFORMATION
  Report Type: Spontaneous
  Country: CA (occurrence: CA)
  Receive Date: 20241227
  Receipt Date: 20250214
  Transmission Date: 20250409
  Serious: Yes (Other)
  Sender: SANOFI AVENTIS
  Company Number: CA-SA-2024SA381922

PATIENT
  Age: 75 Year
  Sex: Female

DRUGS (12)
  1. DUPILUMAB [Suspect]
     Active Substance: DUPILUMAB
     Indication: Dermatitis atopic
  2. MONTELUKAST [Suspect]
     Active Substance: MONTELUKAST
     Indication: Asthma
     Route: 048
  3. BUDESONIDE\FORMOTEROL [Suspect]
     Active Substance: BUDESONIDE\FORMOTEROL
     Indication: Asthma
     Dosage: UNK UNK, BID (60/4.5 UG)
     Route: 055
  4. METHOTREXATE [Suspect]
     Active Substance: METHOTREXATE
     Indication: Dermatitis atopic
  5. PREDNISONE [Concomitant]
     Active Substance: PREDNISONE
     Indication: Dermatitis atopic
     Dosage: 5 MG, TID
     Route: 048
  6. PREDNISONE [Concomitant]
     Active Substance: PREDNISONE
     Route: 048
  7. VITAMIN B12 [Concomitant]
     Active Substance: CYANOCOBALAMIN
     Indication: Product used for unknown indication
  8. VITAMIN D3 [Concomitant]
     Active Substance: CHOLECALCIFEROL
     Indication: Product used for unknown indication
  9. AMLODIPINE [Concomitant]
     Active Substance: AMLODIPINE BESYLATE
     Indication: Product used for unknown indication
  10. CALCIUM [Concomitant]
     Active Substance: CALCIUM
     Indication: Product used for unknown indication
  11. MAGNESIUM CITRATE [Concomitant]
     Active Substance: MAGNESIUM CITRATE
     Indication: Product used for unknown indication
  12. LANSOPRAZOLE [Concomitant]
     Active Substance: LANSOPRAZOLE
     Indication: Product used for unknown indication

REACTIONS (2)
  - Interstitial lung disease [Recovered/Resolved]
  - Drug ineffective [Unknown]
